FAERS Safety Report 17915667 (Version 3)
Quarter: 2022Q1

REPORT INFORMATION
  Report Type: Spontaneous
  Country: CA (occurrence: CA)
  Receive Date: 20200619
  Receipt Date: 20220117
  Transmission Date: 20220423
  Serious: Yes (Hospitalization, Other)
  Sender: FDA-Public Use
  Company Number: CA-TEVA-2020-CA-1789425

PATIENT
  Age: 68 Year
  Sex: Male

DRUGS (9)
  1. LEVETIRACETAM [Suspect]
     Active Substance: LEVETIRACETAM
     Indication: Tonic convulsion
     Dosage: 3000 MILLIGRAM DAILY;
     Route: 065
  2. OXITRIPTAN [Suspect]
     Active Substance: OXITRIPTAN
     Indication: Tonic convulsion
     Dosage: 1200 MILLIGRAM DAILY;
     Route: 065
  3. PHENYTOIN [Suspect]
     Active Substance: PHENYTOIN
     Indication: Tonic convulsion
     Dosage: 75 MILLIGRAM DAILY;
     Route: 065
  4. PHENYTOIN [Suspect]
     Active Substance: PHENYTOIN
     Dosage: 125 MILLIGRAM DAILY;
     Route: 065
  5. VALPROIC ACID [Suspect]
     Active Substance: VALPROIC ACID
     Indication: Tonic convulsion
     Dosage: 2600 MILLIGRAM DAILY;
     Route: 065
  6. CARBIDOPA [Suspect]
     Active Substance: CARBIDOPA
     Indication: Prophylaxis
     Route: 065
  7. CARBIDOPA [Suspect]
     Active Substance: CARBIDOPA
     Indication: Gastrointestinal disorder
  8. CARBIDOPA [Concomitant]
     Active Substance: CARBIDOPA
  9. CLONAZEPAM [Concomitant]
     Active Substance: CLONAZEPAM
     Indication: Product used for unknown indication
     Dosage: 125 MILLIGRAM DAILY;
     Route: 065

REACTIONS (3)
  - Serotonin syndrome [Unknown]
  - Somnolence [Unknown]
  - Myoclonus [Unknown]
